FAERS Safety Report 22370041 (Version 2)
Quarter: 2023Q2

REPORT INFORMATION
  Report Type: Spontaneous
  Country: US (occurrence: US)
  Receive Date: 20230526
  Receipt Date: 20230605
  Transmission Date: 20230722
  Serious: No
  Sender: FDA-Public Use
  Company Number: US-002147023-NVSC2023US116164

PATIENT
  Sex: Female

DRUGS (1)
  1. ALBUTEROL SULFATE [Suspect]
     Active Substance: ALBUTEROL SULFATE
     Indication: Wheezing
     Dosage: 1 DOSAGE FORM, BID
     Route: 048

REACTIONS (4)
  - Paranasal sinus hypersecretion [Unknown]
  - Product dose omission issue [Unknown]
  - Off label use [Unknown]
  - Device issue [Unknown]
